FAERS Safety Report 4681311-1 (Version None)
Quarter: 2005Q2

REPORT INFORMATION
  Report Type: 
  Country: None (occurrence: None)
  Receive Date: 20050601
  Receipt Date: 20050526
  Transmission Date: 20051028
  Serious: Yes (Disabling, Other)
  Sender: FDA-Public Use
  Company Number: OMPQ-PR-0505S-0740

PATIENT
  Sex: Male

DRUGS (1)
  1. OMNIPAQUE 140 [Suspect]
     Indication: NECK PAIN
     Dosage: 10 ML, SINGLE DOSE, I.T.
     Route: 038

REACTIONS (3)
  - ARACHNOIDITIS [None]
  - BLINDNESS [None]
  - PROCEDURAL COMPLICATION [None]
